FAERS Safety Report 4527957-2 (Version None)
Quarter: 2004Q4

REPORT INFORMATION
  Report Type: 
  Country: None (occurrence: None)
  Receive Date: 20041123
  Receipt Date: 20040115
  Transmission Date: 20050328
  Serious: Yes (Other)
  Sender: FDA-Public Use
  Company Number: 2003121151

PATIENT
  Age: 39 Year
  Sex: Female
  Weight: 88.4514 kg

DRUGS (6)
  1. LIPITOR [Suspect]
     Indication: TYPE IIA HYPERLIPIDAEMIA
     Dosage: 20 MG (DAILY), ORAL
     Route: 048
     Dates: start: 20031125, end: 20031125
  2. BENADRYL [Concomitant]
  3. ALLEGRA [Concomitant]
  4. RANITIDINE [Concomitant]
  5. ACCOLATE [Concomitant]
  6. PREDNISONE [Concomitant]

REACTIONS (1)
  - ANAPHYLACTIC REACTION [None]
